FAERS Safety Report 16445530 (Version 3)
Quarter: 2019Q3

REPORT INFORMATION
  Report Type: Spontaneous
  Country: US (occurrence: US)
  Receive Date: 20190618
  Receipt Date: 20190808
  Transmission Date: 20191004
  Serious: No
  Sender: FDA-Public Use
  Company Number: US-PFIZER INC-2019259356

PATIENT
  Age: 56 Year
  Sex: Male

DRUGS (2)
  1. INLYTA [Suspect]
     Active Substance: AXITINIB
     Indication: RENAL CANCER
     Dosage: 5 MG, 2X/DAY
     Route: 048
     Dates: start: 201905
  2. INLYTA [Suspect]
     Active Substance: AXITINIB
     Dosage: 5 MG, 1X/DAY
     Route: 048

REACTIONS (17)
  - Pruritus [Unknown]
  - Muscle spasms [Unknown]
  - Hyperkeratosis [Not Recovered/Not Resolved]
  - Arthralgia [Unknown]
  - Influenza [Unknown]
  - Back pain [Unknown]
  - Muscular weakness [Unknown]
  - Oral pain [Unknown]
  - Groin pain [Unknown]
  - Asthenia [Unknown]
  - Productive cough [Unknown]
  - Product dose omission [Unknown]
  - Oropharyngeal pain [Unknown]
  - Dry mouth [Unknown]
  - Flatulence [Unknown]
  - Faeces soft [Unknown]
  - Pain in extremity [Not Recovered/Not Resolved]

NARRATIVE: CASE EVENT DATE: 2019
